FAERS Safety Report 14638265 (Version 1)
Quarter: 2018Q1

REPORT INFORMATION
  Report Type: Spontaneous
  Country: US (occurrence: US)
  Receive Date: 20180314
  Receipt Date: 20180314
  Transmission Date: 20180509
  Serious: No
  Sender: FDA-Public Use
  Company Number: None

PATIENT
  Age: 84 Year
  Sex: Male
  Weight: 73.8 kg

DRUGS (2)
  1. ZOLEDRONIC ACID [Suspect]
     Active Substance: ZOLEDRONIC ACID
     Indication: BONE DISORDER
     Dosage: ?          OTHER FREQUENCY:ONE TIME-ANNUA;?
     Route: 042
     Dates: start: 20180205, end: 20180205
  2. ZOLEDRONIC ACID [Suspect]
     Active Substance: ZOLEDRONIC ACID
     Indication: BONE DENSITY ABNORMAL
     Dosage: ?          OTHER FREQUENCY:ONE TIME-ANNUA;?
     Route: 042
     Dates: start: 20180205, end: 20180205

REACTIONS (7)
  - Myalgia [None]
  - Confusional state [None]
  - Mobility decreased [None]
  - Arthralgia [None]
  - Pyrexia [None]
  - Abdominal pain upper [None]
  - Hyperhidrosis [None]

NARRATIVE: CASE EVENT DATE: 20180205
